FAERS Safety Report 9633388 (Version 1)
Quarter: 2013Q4

REPORT INFORMATION
  Report Type: Spontaneous
  Country: US (occurrence: US)
  Receive Date: 20131021
  Receipt Date: 20131021
  Transmission Date: 20140711
  Serious: Yes (Other)
  Sender: FDA-Public Use
  Company Number: US-BRISTOL-MYERS SQUIBB COMPANY-19128693

PATIENT
  Age: 64 Year
  Sex: Female

DRUGS (1)
  1. YERVOY [Suspect]
     Dosage: NO OF DOSES 4

REACTIONS (1)
  - Malignant neoplasm progression [Unknown]
